FAERS Safety Report 6708256-7 (Version None)
Quarter: 2010Q2

REPORT INFORMATION
  Report Type: 
  Country: None (occurrence: None)
  Receive Date: 20100503
  Receipt Date: 20090401
  Transmission Date: 20101027
  Serious: No
  Sender: FDA-Public Use
  Company Number: US-ASTRAZENECA-2009UW08214

PATIENT
  Sex: Female

DRUGS (5)
  1. NEXIUM [Suspect]
     Indication: GASTROOESOPHAGEAL REFLUX DISEASE
     Route: 048
  2. ASACOL [Concomitant]
  3. ATIVAN [Concomitant]
  4. EVISTA [Concomitant]
  5. TOPROL-XL [Concomitant]
     Route: 048

REACTIONS (1)
  - JOINT INJURY [None]
